FAERS Safety Report 23184515 (Version 1)
Quarter: 2023Q4

REPORT INFORMATION
  Report Type: Report from Study
  Country: CA (occurrence: CA)
  Receive Date: 20231115
  Receipt Date: 20231115
  Transmission Date: 20240110
  Serious: Yes (Death)
  Sender: FDA-Public Use
  Company Number: CA-TAIHOP-2023-009592

PATIENT
  Age: 65 Year
  Sex: Female

DRUGS (1)
  1. LONSURF [Suspect]
     Active Substance: TIPIRACIL HYDROCHLORIDE\TRIFLURIDINE
     Indication: Colorectal cancer metastatic
     Dosage: DOSE, FREQUENCY, FORM STRENGTH AND CURRENT CYCLE UNKNOWN
     Route: 048
     Dates: start: 20230904

REACTIONS (1)
  - Death [Fatal]

NARRATIVE: CASE EVENT DATE: 20231104
